FAERS Safety Report 9096853 (Version 1)
Quarter: 2013Q1

REPORT INFORMATION
  Report Type: Spontaneous
  Country: US (occurrence: US)
  Receive Date: 20130211
  Receipt Date: 20130211
  Transmission Date: 20140127
  Serious: No
  Sender: FDA-Public Use
  Company Number: US-BAYER-2013-014862

PATIENT
  Sex: Female

DRUGS (2)
  1. BEYAZ [Suspect]
     Dosage: UNK
     Route: 048
  2. Z-PAK [Interacting]
     Indication: INFECTION
     Dosage: UNK

REACTIONS (1)
  - Drug interaction [None]
